FAERS Safety Report 8670150 (Version 2)
Quarter: 2013Q4

REPORT INFORMATION
  Report Type: Spontaneous
  Country: US (occurrence: US)
  Receive Date: 20120718
  Receipt Date: 20131008
  Transmission Date: 20140711
  Serious: Yes (Disabling, Other)
  Sender: FDA-Public Use
  Company Number: US-ROCHE-1088520

PATIENT
  Age: 30 Year
  Sex: Female
  Weight: 62.65 kg

DRUGS (1)
  1. ACCUTANE [Suspect]
     Indication: ACNE
     Route: 065
     Dates: start: 199410, end: 1995

REACTIONS (5)
  - Crohn^s disease [Unknown]
  - Anxiety [Unknown]
  - Injury [Unknown]
  - Blood cholesterol increased [Unknown]
  - Pharyngitis [Unknown]
